FAERS Safety Report 25956014 (Version 1)
Quarter: 2025Q4

REPORT INFORMATION
  Report Type: Report from Study
  Country: EU (occurrence: EU)
  Receive Date: 20251024
  Receipt Date: 20251024
  Transmission Date: 20260119
  Serious: Yes (Other)
  Sender: ROCHE
  Company Number: EU-ROCHE-10000411905

PATIENT

DRUGS (1)
  1. BEVACIZUMAB [Suspect]
     Active Substance: BEVACIZUMAB
     Indication: Neoplasm
     Route: 065

REACTIONS (35)
  - Sepsis [Unknown]
  - Abscess [Unknown]
  - Urinary tract infection [Unknown]
  - Wound complication [Unknown]
  - Pneumonia [Unknown]
  - Infection [Unknown]
  - Embolism [Unknown]
  - Haemorrhage [Unknown]
  - Arrhythmia [Unknown]
  - Hypertension [Unknown]
  - Gastrointestinal haemorrhage [Unknown]
  - Ileus [Unknown]
  - Fistula [Unknown]
  - Abdominal pain [Unknown]
  - Gastritis [Unknown]
  - Stomatitis [Unknown]
  - Nausea [Unknown]
  - Vomiting [Unknown]
  - Diarrhoea [Unknown]
  - Proteinuria [Unknown]
  - Renal failure [Unknown]
  - Urogenital fistula [Unknown]
  - Anaemia [Unknown]
  - Leukopenia [Unknown]
  - Thrombocytopenia [Unknown]
  - Neutropenia [Unknown]
  - Pancytopenia [Unknown]
  - Headache [Unknown]
  - Migraine [Unknown]
  - Neuropathy peripheral [Unknown]
  - Rhinitis [Unknown]
  - Dyspnoea [Unknown]
  - Dehydration [Unknown]
  - Decreased appetite [Unknown]
  - Skin disorder [Unknown]
